FAERS Safety Report 4476918-0 (Version None)
Quarter: 2004Q4

REPORT INFORMATION
  Report Type: 
  Country: None (occurrence: None)
  Receive Date: 20041012
  Receipt Date: 20041001
  Transmission Date: 20050328
  Serious: Yes (Other)
  Sender: FDA-Public Use
  Company Number: 163-20785-04100121

PATIENT

DRUGS (2)
  1. THALOMID [Suspect]
     Indication: GLIOBLASTOMA
     Dosage: 200MG QD W/TITRATION OF 100-200MG/D Q 1-2 WKS TO A MAX OF 1200MG, QD, OARL
     Route: 048
  2. RADIATION THERAPY [Suspect]
     Indication: GLIOBLASTOMA
     Dosage: TOTAL DOSE 60GY OVER 6 WEEKS

REACTIONS (10)
  - ALOPECIA [None]
  - ASTHENIA [None]
  - FATIGUE [None]
  - HYPERSENSITIVITY [None]
  - LETHARGY [None]
  - MALAISE [None]
  - PERIPHERAL SENSORY NEUROPATHY [None]
  - PRURITUS [None]
  - RADIATION SKIN INJURY [None]
  - RECALL PHENOMENON [None]
